FAERS Safety Report 6398286-X (Version None)
Quarter: 2009Q4

REPORT INFORMATION
  Report Type: 
  Country: None (occurrence: None)
  Receive Date: 20091013
  Receipt Date: 20091001
  Transmission Date: 20100525
  Serious: Yes (Other)
  Sender: FDA-Public Use
  Company Number: JP-PFIZER INC-2009278645

PATIENT

DRUGS (2)
  1. ZITHROMAX [Suspect]
     Indication: CHLAMYDIAL INFECTION
     Route: 067
  2. ALL OTHER THERAPEUTIC PRODUCTS [Concomitant]
     Route: 066

REACTIONS (3)
  - INTENTIONAL DRUG MISUSE [None]
  - VAGINAL EROSION [None]
  - VAGINAL HAEMORRHAGE [None]
